FAERS Safety Report 11588292 (Version 1)
Quarter: 2015Q4

REPORT INFORMATION
  Report Type: Spontaneous
  Country: US (occurrence: US)
  Receive Date: 20151002
  Receipt Date: 20151002
  Transmission Date: 20160304
  Serious: No
  Sender: FDA-Public Use
  Company Number: US-RRD-14-00096

PATIENT
  Age: 39 Year
  Sex: Female
  Weight: 56.43 kg

DRUGS (1)
  1. PANHEMATIN [Suspect]
     Active Substance: HEMIN
     Indication: PORPHYRIA ACUTE
     Route: 042
     Dates: start: 20140710, end: 20140712

REACTIONS (1)
  - Injection site phlebitis [Recovered/Resolved]

NARRATIVE: CASE EVENT DATE: 20140710
